FAERS Safety Report 11811668 (Version 2)
Quarter: 2015Q4

REPORT INFORMATION
  Report Type: Spontaneous
  Country: US (occurrence: US)
  Receive Date: 20151208
  Receipt Date: 20151224
  Transmission Date: 20160305
  Serious: No
  Sender: FDA-Public Use
  Company Number: US-ELI_LILLY_AND_COMPANY-US201504008115

PATIENT
  Age: 54 Year
  Sex: Female

DRUGS (3)
  1. HUMATROPE [Suspect]
     Active Substance: SOMATROPIN
     Indication: GROWTH HORMONE DEFICIENCY
     Dosage: 0.08 DF, QD
     Route: 065
  2. HUMATROPE [Suspect]
     Active Substance: SOMATROPIN
     Dosage: 0.08 DF, QD
     Route: 065
     Dates: start: 201501
  3. HUMATROPE [Suspect]
     Active Substance: SOMATROPIN
     Indication: GROWTH HORMONE DEFICIENCY
     Dosage: 0.08 DF, QD
     Route: 065
     Dates: start: 201501

REACTIONS (3)
  - Injection site pain [Not Recovered/Not Resolved]
  - Blood growth hormone decreased [Not Recovered/Not Resolved]
  - Incorrect dose administered [Not Recovered/Not Resolved]

NARRATIVE: CASE EVENT DATE: 20150422
